FAERS Safety Report 24264739 (Version 1)
Quarter: 2024Q3

REPORT INFORMATION
  Report Type: Spontaneous
  Country: FR (occurrence: FR)
  Receive Date: 20240829
  Receipt Date: 20240829
  Transmission Date: 20241017
  Serious: Yes (Other)
  Sender: MYLAN
  Company Number: None

PATIENT
  Age: 18 Year
  Sex: Female
  Weight: 83 kg

DRUGS (1)
  1. TRAMADOL [Suspect]
     Active Substance: TRAMADOL\TRAMADOL HYDROCHLORIDE
     Indication: Product used for unknown indication
     Dosage: 500 MILLIGRAM, TOTAL
     Route: 048
     Dates: start: 20240627, end: 20240627

REACTIONS (6)
  - Drug dependence [Unknown]
  - Fall [Recovered/Resolved]
  - Abdominal pain [Recovering/Resolving]
  - Hypoglycaemia [Recovered/Resolved]
  - Nausea [Recovering/Resolving]
  - Intentional product misuse [Unknown]

NARRATIVE: CASE EVENT DATE: 20240627
